FAERS Safety Report 7591654-X (Version None)
Quarter: 2011Q3

REPORT INFORMATION
  Report Type: 
  Country: None (occurrence: None)
  Receive Date: 20110701
  Receipt Date: 20110701
  Transmission Date: 20111222
  Serious: Yes (Hospitalization)
  Sender: FDA-Public Use
  Company Number: None

PATIENT
  Age: 42 Year
  Sex: Female
  Weight: 58.514 kg

DRUGS (2)
  1. AZITHROMYCIN [Suspect]
     Indication: PROPHYLAXIS
     Dosage: 250MG 1 DAILY FOR 5 DAYS PO
     Route: 048
     Dates: start: 20110627, end: 20110628
  2. AZITHROMYCIN [Suspect]
     Indication: PERTUSSIS
     Dosage: 250MG 1 DAILY FOR 5 DAYS PO
     Route: 048
     Dates: start: 20110627, end: 20110628

REACTIONS (2)
  - MUSCULOSKELETAL CHEST PAIN [None]
  - DYSPNOEA [None]
